FAERS Safety Report 19059309 (Version 6)
Quarter: 2021Q2

REPORT INFORMATION
  Report Type: Report from Study
  Country: CN (occurrence: CN)
  Receive Date: 20210325
  Receipt Date: 20210527
  Transmission Date: 20210717
  Serious: Yes (Hospitalization)
  Sender: FDA-Public Use
  Company Number: CN-BAYER-2021-111262

PATIENT
  Age: 12 Year
  Sex: Male
  Weight: 33.2 kg

DRUGS (3)
  1. LAROTRECTINIB [Suspect]
     Active Substance: LAROTRECTINIB
     Indication: SPINDLE CELL SARCOMA
     Dosage: 100 MG, BID
     Route: 048
     Dates: start: 20201125, end: 20210318
  2. LAROTRECTINIB [Suspect]
     Active Substance: LAROTRECTINIB
     Indication: SPINDLE CELL SARCOMA
     Dosage: 100 MG, BID
     Route: 048
     Dates: start: 20210405, end: 20210415
  3. LAROTRECTINIB [Suspect]
     Active Substance: LAROTRECTINIB
     Indication: SPINDLE CELL SARCOMA
     Dosage: 100 MG, BID
     Route: 048
     Dates: start: 20210416

REACTIONS (3)
  - Hypernatraemia [Not Recovered/Not Resolved]
  - Hypernatraemia [Recovered/Resolved]
  - Hypernatraemia [Recovered/Resolved]

NARRATIVE: CASE EVENT DATE: 20210322
